FAERS Safety Report 12392340 (Version 1)
Quarter: 2016Q2

REPORT INFORMATION
  Report Type: Spontaneous
  Country: US (occurrence: None)
  Receive Date: 20160520
  Receipt Date: 20160520
  Transmission Date: 20160815
  Serious: Yes (Death)
  Sender: FDA-Public Use
  Company Number: None

PATIENT
  Sex: Male

DRUGS (1)
  1. CIPROFLOXACIN. [Suspect]
     Active Substance: CIPROFLOXACIN
     Dates: start: 20150703, end: 20150704

REACTIONS (3)
  - Eye movement disorder [None]
  - Pneumonia aspiration [None]
  - Haematemesis [None]

NARRATIVE: CASE EVENT DATE: 20150706
